FAERS Safety Report 6715678-7 (Version None)
Quarter: 2010Q2

REPORT INFORMATION
  Report Type: 
  Country: None (occurrence: None)
  Receive Date: 20100507
  Receipt Date: 20091124
  Transmission Date: 20101027
  Serious: No
  Sender: FDA-Public Use
  Company Number: A0832074A

PATIENT
  Sex: Female

DRUGS (1)
  1. DYNACIRC CR [Suspect]
     Indication: DRUG USE FOR UNKNOWN INDICATION
     Dosage: 10MG UNKNOWN
     Route: 065

REACTIONS (2)
  - CARDIAC DISORDER [None]
  - CONDITION AGGRAVATED [None]
